FAERS Safety Report 25492965 (Version 1)
Quarter: 2025Q2

REPORT INFORMATION
  Report Type: Report from Study
  Country: US (occurrence: US)
  Receive Date: 20250630
  Receipt Date: 20250630
  Transmission Date: 20250717
  Serious: No
  Sender: TRAVERE THERAPEUTICS
  Company Number: US-TRAVERE-2025TVT00789

PATIENT
  Age: 47 Year
  Sex: Female

DRUGS (10)
  1. FILSPARI [Suspect]
     Active Substance: SPARSENTAN
     Indication: IgA nephropathy
     Route: 048
     Dates: start: 202503
  2. PREDNISONE [Concomitant]
     Active Substance: PREDNISONE
  3. PROGRAF [Concomitant]
     Active Substance: TACROLIMUS
  4. AMLODIPINE [Concomitant]
     Active Substance: AMLODIPINE BESYLATE
  5. METOPROLOL [Concomitant]
     Active Substance: METOPROLOL
  6. LOSARTAN [Concomitant]
     Active Substance: LOSARTAN
  7. WARFARIN [Concomitant]
     Active Substance: WARFARIN
  8. NITROFURANTOIN [Concomitant]
     Active Substance: NITROFURANTOIN
  9. PANTOPRAZOLE [Concomitant]
     Active Substance: PANTOPRAZOLE
  10. CALCIUM CARBONATE\CHOLECALCIFEROL [Concomitant]
     Active Substance: CALCIUM CARBONATE\CHOLECALCIFEROL

REACTIONS (5)
  - Blood urea increased [Unknown]
  - Basophil percentage increased [Unknown]
  - Prothrombin time prolonged [Unknown]
  - International normalised ratio increased [Unknown]
  - Off label use [Unknown]

NARRATIVE: CASE EVENT DATE: 20250324
